FAERS Safety Report 6385864-7 (Version None)
Quarter: 2009Q4

REPORT INFORMATION
  Report Type: 
  Country: None (occurrence: None)
  Receive Date: 20091002
  Receipt Date: 20090923
  Transmission Date: 20100525
  Serious: Yes (Other)
  Sender: FDA-Public Use
  Company Number: BR-PFIZER INC-2009194528

PATIENT
  Age: 44 Year

DRUGS (7)
  1. DEPO-PROVERA [Suspect]
     Indication: OFF LABEL USE
     Dosage: 150 MG, EVERY 3 MONTHS
     Route: 030
     Dates: start: 20090107
  2. DEPO-PROVERA [Suspect]
     Indication: MENSTRUAL DISCOMFORT
  3. DEPO-PROVERA [Suspect]
     Indication: ENDOMETRIOSIS
  4. ATENOLOL [Concomitant]
     Indication: HYPERTENSION
     Dosage: UNK
     Dates: start: 19940101
  5. ENALAPRIL [Concomitant]
     Indication: HYPERTENSION
     Dosage: UNK
     Dates: start: 19940101
  6. DIAZEPAM [Concomitant]
     Dosage: UNK
  7. DICLOFENAC SODIUM [Concomitant]
     Indication: EYE IRRITATION
     Dosage: UNK

REACTIONS (19)
  - BEDRIDDEN [None]
  - BLINDNESS TRANSIENT [None]
  - DECREASED APPETITE [None]
  - DIARRHOEA [None]
  - DRUG INEFFECTIVE [None]
  - DRUG INEFFECTIVE FOR UNAPPROVED INDICATION [None]
  - ERYTHEMA [None]
  - HAEMORRHAGE [None]
  - MENSTRUATION IRREGULAR [None]
  - MYALGIA [None]
  - NAUSEA [None]
  - NEUROPATHY PERIPHERAL [None]
  - OFF LABEL USE [None]
  - PAIN IN EXTREMITY [None]
  - PRURITUS [None]
  - RASH [None]
  - VOMITING [None]
  - WEIGHT DECREASED [None]
  - WEIGHT INCREASED [None]
